FAERS Safety Report 16936896 (Version 1)
Quarter: 2019Q4

REPORT INFORMATION
  Report Type: Report from Study
  Country: US (occurrence: US)
  Receive Date: 20191018
  Receipt Date: 20191018
  Transmission Date: 20200122
  Serious: Yes (Other)
  Sender: FDA-Public Use
  Company Number: US-BAYER-2019-184616

PATIENT

DRUGS (1)
  1. ACETYLSALICYLIC ACID (PAIN AND FEVER) [Suspect]
     Active Substance: ASPIRIN
     Dosage: ASA 81 MG DAILY FOR ONE WEEK/PLACEBO FOR ONE WEEK

REACTIONS (2)
  - Gastrointestinal haemorrhage [None]
  - Haematocrit decreased [None]
